FAERS Safety Report 17824522 (Version 1)
Quarter: 2020Q2

REPORT INFORMATION
  Report Type: Spontaneous
  Country: US (occurrence: US)
  Receive Date: 20200526
  Receipt Date: 20200526
  Transmission Date: 20200714
  Serious: Yes (Hospitalization)
  Sender: FDA-Public Use
  Company Number: None

PATIENT
  Age: 57 Year
  Sex: Female

DRUGS (1)
  1. GRANIX [Suspect]
     Active Substance: TBO-FILGRASTIM
     Indication: CARCINOID TUMOUR
     Dosage: ?          OTHER FREQUENCY:QD FOR 3 DAYS;?
     Route: 058
     Dates: start: 20190212

REACTIONS (2)
  - Gastrointestinal disorder [None]
  - Clostridium difficile infection [None]

NARRATIVE: CASE EVENT DATE: 20200429
